FAERS Safety Report 10411768 (Version 1)
Quarter: 2014Q2

REPORT INFORMATION
  Report Type: Spontaneous
  Country: US (occurrence: None)
  Receive Date: 20140604
  Receipt Date: 20140604
  Transmission Date: 20141212
  Serious: Yes (Hospitalization)
  Sender: FDA-Public Use
  Company Number: 163-POMAL-14041771

PATIENT
  Age: 76 Year
  Sex: Female
  Weight: 52.2 kg

DRUGS (1)
  1. POMALYST [Suspect]
     Indication: PLASMA CELL MYELOMA
     Dates: start: 20130713

REACTIONS (3)
  - Urinary tract infection [None]
  - Cough [None]
  - Rash [None]
